FAERS Safety Report 15312440 (Version 1)
Quarter: 2018Q3

REPORT INFORMATION
  Report Type: Report from Study
  Country: NG (occurrence: NG)
  Receive Date: 20180823
  Receipt Date: 20180823
  Transmission Date: 20181010
  Serious: Yes (Other)
  Sender: FDA-Public Use
  Company Number: NG-VIIV HEALTHCARE LIMITED-NG2017GSK203977

PATIENT
  Age: 41 Year
  Sex: Male

DRUGS (4)
  1. STAVUDINE. [Suspect]
     Active Substance: STAVUDINE
     Indication: ANTIFUNGAL TREATMENT
  2. FUNGIZONE [Suspect]
     Active Substance: AMPHOTERICIN B
     Indication: ANTIFUNGAL TREATMENT
  3. AMPHOTERICIN B LIPOSOME [Suspect]
     Active Substance: AMPHOTERICIN B
     Indication: ANTIFUNGAL TREATMENT
  4. LAMIVUDINE. [Suspect]
     Active Substance: LAMIVUDINE
     Indication: ANTIFUNGAL TREATMENT

REACTIONS (2)
  - Deafness [Recovering/Resolving]
  - Hypoacusis [Recovering/Resolving]
